FAERS Safety Report 21875321 (Version 1)
Quarter: 2023Q1

REPORT INFORMATION
  Report Type: Spontaneous
  Country: HR (occurrence: HR)
  Receive Date: 20230117
  Receipt Date: 20230117
  Transmission Date: 20230417
  Serious: Yes (Other)
  Sender: FDA-Public Use
  Company Number: HR-CELLTRION INC.-2023HR000423

PATIENT

DRUGS (16)
  1. RITUXIMAB [Suspect]
     Active Substance: RITUXIMAB
     Indication: Immunosuppressant drug therapy
     Dosage: 1000 MG
     Route: 042
     Dates: start: 20200205
  2. RITUXIMAB [Suspect]
     Active Substance: RITUXIMAB
     Dosage: 375 MG/M2 SINGLE DOSE
     Route: 042
     Dates: start: 20221005
  3. TACROLIMUS [Suspect]
     Active Substance: TACROLIMUS
     Indication: Immunosuppressant drug therapy
     Dosage: 11MG EVERY 0.5 DAY
  4. TACROLIMUS [Suspect]
     Active Substance: TACROLIMUS
     Dosage: 3 MG
     Dates: start: 20200928
  5. TACROLIMUS [Suspect]
     Active Substance: TACROLIMUS
     Dosage: 3MG EVERY 0.5 DAY MORNING AND EVENING
     Dates: start: 20200929
  6. TACROLIMUS [Suspect]
     Active Substance: TACROLIMUS
     Dosage: 24MG EVERY 0.5 DAY
  7. TACROLIMUS [Suspect]
     Active Substance: TACROLIMUS
     Dosage: 8MG EVERY 0.5 DAY
  8. TACROLIMUS [Suspect]
     Active Substance: TACROLIMUS
     Dosage: 6MG EVERY 0.5 DAY
  9. TACROLIMUS [Suspect]
     Active Substance: TACROLIMUS
     Dosage: 10MG EVERY 0.5 DAY
  10. PREDNISONE [Suspect]
     Active Substance: PREDNISONE
     Indication: Immunosuppressant drug therapy
     Dosage: THERAPY DATE: 29/SEP/2020
     Dates: start: 20200928
  11. MYCOPHENOLATE MOFETIL [Suspect]
     Active Substance: MYCOPHENOLATE MOFETIL
     Indication: Immunosuppressant drug therapy
     Dosage: 1000 MG
     Dates: start: 20200928
  12. MYCOPHENOLATE MOFETIL [Suspect]
     Active Substance: MYCOPHENOLATE MOFETIL
     Dosage: 1000 MG EVERY 0.5 DAY
     Dates: start: 20200929
  13. METHYLPREDNISOLONE [Concomitant]
     Active Substance: METHYLPREDNISOLONE
     Dosage: FOR 3 CONSECUTIVE DAYS
  14. MYCOPHENOLIC ACID [Concomitant]
     Active Substance: MYCOPHENOLIC ACID
     Dosage: MORNING AND IN THE EVENING
  15. DILTIAZEM [Concomitant]
     Active Substance: DILTIAZEM
     Dosage: TWICE
  16. CEFEPIME [Concomitant]
     Active Substance: CEFEPIME HYDROCHLORIDE
     Dosage: 1 G EVERY 0.5 DAY

REACTIONS (2)
  - Bacteraemia [Unknown]
  - Off label use [Unknown]
